FAERS Safety Report 25003072 (Version 1)
Quarter: 2025Q1

REPORT INFORMATION
  Report Type: Spontaneous
  Country: US (occurrence: US)
  Receive Date: 20250224
  Receipt Date: 20250224
  Transmission Date: 20250409
  Serious: No
  Sender: SANOFI AVENTIS
  Company Number: US-SA-2025SA054063

PATIENT
  Age: 17 Year
  Sex: Female

DRUGS (9)
  1. DUPIXENT [Suspect]
     Active Substance: DUPILUMAB
     Indication: Dermatitis atopic
     Dosage: 300 MG, QOW
     Route: 058
     Dates: start: 20240601
  2. CETIRIZINE [Concomitant]
     Active Substance: CETIRIZINE HYDROCHLORIDE
  3. CETIRIZINE [Concomitant]
     Active Substance: CETIRIZINE HYDROCHLORIDE
  4. FLUTICASONE [Concomitant]
     Active Substance: FLUTICASONE
  5. MOMETASONE [Concomitant]
     Active Substance: MOMETASONE
  6. TACROLIMUS [Concomitant]
     Active Substance: TACROLIMUS
  7. TRETINOIN [Concomitant]
     Active Substance: TRETINOIN
  8. TRETINOIN [Concomitant]
     Active Substance: TRETINOIN
  9. Triamcinolon [Concomitant]

REACTIONS (4)
  - Asthma [Unknown]
  - Discomfort [Unknown]
  - Rash erythematous [Unknown]
  - Rash [Unknown]
